FAERS Safety Report 6308584-3 (Version None)
Quarter: 2009Q3

REPORT INFORMATION
  Report Type: 
  Country: None (occurrence: None)
  Receive Date: 20090812
  Receipt Date: 20090731
  Transmission Date: 20100115
  Serious: Yes (Other)
  Sender: FDA-Public Use
  Company Number: 2009AP003119

PATIENT
  Age: 11 Year
  Sex: Female

DRUGS (3)
  1. RISPERIDONE [Suspect]
  2. STRATTERA [Suspect]
     Indication: ATTENTION DEFICIT/HYPERACTIVITY DISORDER
  3. TOMOXETINE HYDROCHLORIDE (TOMOXETINE HYDROCHLORIDE) [Concomitant]

REACTIONS (3)
  - DRUG INEFFECTIVE [None]
  - DRUG INTERACTION [None]
  - SYNCOPE [None]
